FAERS Safety Report 7094223-3 (Version None)
Quarter: 2010Q4

REPORT INFORMATION
  Report Type: 
  Country: None (occurrence: None)
  Receive Date: 20101102
  Receipt Date: 20101022
  Transmission Date: 20110411
  Serious: Yes (Other)
  Sender: FDA-Public Use
  Company Number: 2010-01041

PATIENT
  Age: 57 Year
  Sex: Male
  Weight: 87 kg

DRUGS (1)
  1. SIMVASTATIN [Suspect]
     Indication: HYPERCHOLESTEROLAEMIA
     Dosage: 40 MG (1 IN 1 D), ORAL
     Route: 048
     Dates: start: 20090601, end: 20090901

REACTIONS (5)
  - AMNESIA [None]
  - DEPRESSED MOOD [None]
  - DEPRESSION [None]
  - EMOTIONAL DISTRESS [None]
  - IMPAIRED WORK ABILITY [None]
